FAERS Safety Report 6595820-1 (Version None)
Quarter: 2010Q1

REPORT INFORMATION
  Report Type: 
  Country: None (occurrence: None)
  Receive Date: 20100216
  Receipt Date: 20100205
  Transmission Date: 20100710
  Serious: Yes (Disabling)
  Sender: FDA-Public Use
  Company Number: 500556

PATIENT
  Sex: Male

DRUGS (3)
  1. BUPIVACAINE HYDROCHLORIDE [Suspect]
     Indication: PAIN MANAGEMENT
     Dosage: 4.16 ML/H INTRA-ARTICULAR INFUSION
     Route: 014
  2. BUPIVACAINE HYDROCHLORIDE [Suspect]
     Indication: POSTOPERATIVE ANALGESIA
     Dosage: 4.16 ML/H INTRA-ARTICULAR INFUSION
     Route: 014
  3. BUPIVACAINE HYDROCHLORIDE [Concomitant]

REACTIONS (9)
  - CHONDROLYSIS [None]
  - CHONDROMALACIA [None]
  - CHONDROPATHY [None]
  - CREPITATIONS [None]
  - FALL [None]
  - LIGAMENT RUPTURE [None]
  - MUSCULOSKELETAL PAIN [None]
  - PAIN [None]
  - SYNOVITIS [None]
